FAERS Safety Report 5706419-0 (Version None)
Quarter: 2008Q2

REPORT INFORMATION
  Report Type: 
  Country: None (occurrence: None)
  Receive Date: 20080411
  Receipt Date: 20080331
  Transmission Date: 20081010
  Serious: Yes (Other)
  Sender: FDA-Public Use
  Company Number: GXKR2008GB03134

PATIENT
  Age: 64 Year
  Sex: Female
  Weight: 63.8 kg

DRUGS (3)
  1. WARFARIN SODIUM [Suspect]
     Indication: ANTICOAGULANT THERAPY
     Dosage: 4.5 MG, QD; ORAL
     Route: 048
  2. DASTINIB(DASATINIB) [Suspect]
     Indication: CHRONIC MYELOID LEUKAEMIA
     Dosage: 50 MG, QD; ORAL, 100 MG, QD; ORAL
     Route: 048
     Dates: start: 20061227, end: 20071219
  3. DASTINIB(DASATINIB) [Suspect]
     Indication: CHRONIC MYELOID LEUKAEMIA
     Dosage: 50 MG, QD; ORAL, 100 MG, QD; ORAL
     Route: 048
     Dates: end: 20071219

REACTIONS (2)
  - PULMONARY EMBOLISM [None]
  - PULMONARY HYPERTENSION [None]
